FAERS Safety Report 24988946 (Version 1)
Quarter: 2025Q1

REPORT INFORMATION
  Report Type: Spontaneous
  Country: CA (occurrence: CA)
  Receive Date: 20250220
  Receipt Date: 20250220
  Transmission Date: 20250409
  Serious: Yes (Other)
  Sender: TEVA
  Company Number: CA-TEVA-VS-3298689

PATIENT
  Age: 5 Year
  Sex: Female

DRUGS (4)
  1. PREDNISONE [Suspect]
     Active Substance: PREDNISONE
     Indication: Dermatomyositis
     Route: 065
  2. CHOLECALCIFEROL [Suspect]
     Active Substance: CHOLECALCIFEROL
     Indication: Supplementation therapy
     Route: 065
  3. METHOTREXATE [Concomitant]
     Active Substance: METHOTREXATE
     Indication: Dermatomyositis
     Route: 065
  4. IMMUNOGLOBULINS [Concomitant]
     Indication: Dermatomyositis
     Route: 042

REACTIONS (3)
  - Osteoporosis [Recovering/Resolving]
  - Vertebral wedging [Recovering/Resolving]
  - Drug ineffective [Unknown]
